FAERS Safety Report 20810815 (Version 2)
Quarter: 2024Q2

REPORT INFORMATION
  Report Type: Spontaneous
  Country: US (occurrence: US)
  Receive Date: 20220510
  Receipt Date: 20240411
  Transmission Date: 20240715
  Serious: No
  Sender: FDA-Public Use
  Company Number: US-PFIZER INC-202200633426

PATIENT
  Age: 53 Year
  Sex: Female

DRUGS (5)
  1. INLYTA [Suspect]
     Active Substance: AXITINIB
     Indication: Renal cell carcinoma
     Dosage: 1 TABLET TWICE A DAY BY MOUTH
     Route: 048
     Dates: start: 20220411
  2. INLYTA [Suspect]
     Active Substance: AXITINIB
     Dosage: 1 TABLET TWICE A DAY BY MOUTH
     Route: 048
  3. CYCLOBENZAPRINE [Concomitant]
     Active Substance: CYCLOBENZAPRINE
     Dosage: UNK
  4. GAMMAGARD [Concomitant]
     Active Substance: HUMAN IMMUNOGLOBULIN G
     Dosage: UNK
  5. ZOFRAN ODT [Concomitant]
     Active Substance: ONDANSETRON HYDROCHLORIDE
     Dosage: UNK

REACTIONS (3)
  - Fatigue [Recovered/Resolved]
  - Nerve injury [Unknown]
  - Rash pruritic [Unknown]
